FAERS Safety Report 21270443 (Version 2)
Quarter: 2022Q3

REPORT INFORMATION
  Report Type: Spontaneous
  Country: US (occurrence: US)
  Receive Date: 20220830
  Receipt Date: 20220927
  Transmission Date: 20221026
  Serious: No
  Sender: FDA-Public Use
  Company Number: US-PFIZER INC-202201093818

PATIENT
  Age: 73 Year
  Sex: Male

DRUGS (4)
  1. PAXLOVID [Suspect]
     Active Substance: NIRMATRELVIR\RITONAVIR
     Indication: COVID-19 treatment
     Dosage: [PF-07321332 300 MG]/[RITONAVIR 100 MG], ONCE TWICE A DAY (MORNING AND NIGHT)
     Route: 048
     Dates: start: 20220824
  2. ASPIRIN [Concomitant]
     Active Substance: ASPIRIN
     Indication: Arteriosclerosis
     Dosage: 81 MG, DAILY
     Dates: start: 2008
  3. METOPROLOL [Concomitant]
     Active Substance: METOPROLOL
     Indication: Stent placement
     Dosage: 25 MG, ONCE DAILY
     Dates: start: 2008
  4. FISH OIL [Concomitant]
     Active Substance: FISH OIL
     Indication: Stent placement
     Dosage: 1200 MG, TWICE DAILY (ONE IN THE MORNING AND EVENING)
     Dates: start: 2008

REACTIONS (1)
  - Dysgeusia [Recovering/Resolving]

NARRATIVE: CASE EVENT DATE: 20220824
